FAERS Safety Report 21159878 (Version 1)
Quarter: 2022Q3

REPORT INFORMATION
  Report Type: Spontaneous
  Country: US (occurrence: US)
  Receive Date: 20220802
  Receipt Date: 20220802
  Transmission Date: 20221026
  Serious: Yes (Hospitalization, Other)
  Sender: FDA-Public Use
  Company Number: US-AVET LIFESCIENCES LTD-2022-AVET-000131

PATIENT
  Age: 40 Year
  Sex: Male

DRUGS (5)
  1. TACROLIMUS [Interacting]
     Active Substance: TACROLIMUS
     Indication: Immunosuppression
     Dosage: 6?MG (AM), 5?MG (PM)
  2. TACROLIMUS [Interacting]
     Active Substance: TACROLIMUS
     Dosage: 3 MG (AM), 2 MG (PM)(ON DAY 4 TO 6 JAN)
  3. TACROLIMUS [Interacting]
     Active Substance: TACROLIMUS
     Dosage: 1 MILLIGRAM, 2 DOSE PER 1 D (ON DAY6, 13-14 JAN AT DISCHARGE , 05:19 AND 11:51)
  4. NIRMATRELVIR\RITONAVIR [Interacting]
     Active Substance: NIRMATRELVIR\RITONAVIR
     Indication: COVID-19
     Dosage: 150/100?MG ? 4 DOSES (4-6 JAN)
  5. mycophenolic acid-sodium [Concomitant]
     Indication: Immunosuppression
     Dosage: 180 MILLIGRAM, 2 DOSE PER 1 D

REACTIONS (5)
  - Drug interaction [Unknown]
  - Anticoagulation drug level above therapeutic [Recovered/Resolved]
  - Acute kidney injury [Recovered/Resolved]
  - Toxicity to various agents [Recovered/Resolved]
  - Hypertransaminasaemia [Recovered/Resolved]
